FAERS Safety Report 19213516 (Version 3)
Quarter: 2021Q2

REPORT INFORMATION
  Report Type: Report from Study
  Country: US (occurrence: US)
  Receive Date: 20210504
  Receipt Date: 20210603
  Transmission Date: 20210717
  Serious: No
  Sender: FDA-Public Use
  Company Number: NVSC2021US095571

PATIENT
  Sex: Male

DRUGS (1)
  1. ENTRESTO [Suspect]
     Active Substance: SACUBITRIL\VALSARTAN
     Indication: PRODUCT USED FOR UNKNOWN INDICATION
     Dosage: 200 MG, BID
     Route: 048
     Dates: start: 2020

REACTIONS (6)
  - Feeling abnormal [Unknown]
  - Inappropriate schedule of product administration [Unknown]
  - Headache [Unknown]
  - Heart rate decreased [Unknown]
  - Product dose omission issue [Unknown]
  - Weight increased [Unknown]
